FAERS Safety Report 14956265 (Version 2)
Quarter: 2019Q2

REPORT INFORMATION
  Report Type: Spontaneous
  Country: US (occurrence: US)
  Receive Date: 20180531
  Receipt Date: 20190524
  Transmission Date: 20190711
  Serious: No
  Sender: FDA-Public Use
  Company Number: US-NOVEN PHARMACEUTICALS, INC.-US2017000623

PATIENT

DRUGS (1)
  1. DAYTRANA [Suspect]
     Active Substance: METHYLPHENIDATE
     Indication: ATTENTION DEFICIT/HYPERACTIVITY DISORDER
     Dosage: 10 MG, UNKNOWN
     Route: 062

REACTIONS (10)
  - Application site dryness [Recovered/Resolved]
  - Application site rash [Recovered/Resolved]
  - Therapy cessation [Not Recovered/Not Resolved]
  - Abdominal pain [Recovered/Resolved]
  - Wrong technique in product usage process [Recovered/Resolved]
  - Muscle spasms [Recovered/Resolved]
  - Dizziness [Recovered/Resolved]
  - Nausea [Recovered/Resolved]
  - Tic [Recovered/Resolved]
  - Application site pruritus [Recovered/Resolved]
